FAERS Safety Report 12171423 (Version 1)
Quarter: 2016Q1

REPORT INFORMATION
  Report Type: Spontaneous
  Country: US (occurrence: None)
  Receive Date: 20160310
  Receipt Date: 20160310
  Transmission Date: 20160526
  Serious: No
  Sender: FDA-Public Use
  Company Number: None

PATIENT
  Age: 63 Year
  Sex: Female

DRUGS (21)
  1. CAPECITABINE 500MG [Suspect]
     Active Substance: CAPECITABINE
     Indication: COLON CANCER
     Dosage: 3 TABS QAM DAILY X14 DAYS BY MOUTH
     Route: 048
     Dates: start: 20151103
  2. CRESTOR [Concomitant]
     Active Substance: ROSUVASTATIN CALCIUM
  3. ESOMEPRAZOLE [Concomitant]
     Active Substance: ESOMEPRAZOLE
  4. BROVANA [Concomitant]
     Active Substance: ARFORMOTEROL TARTRATE
  5. PANTOPRAZOLE [Concomitant]
     Active Substance: PANTOPRAZOLE SODIUM
  6. LEVOTHYROXINE. [Concomitant]
     Active Substance: LEVOTHYROXINE
  7. ALBUTEROL NEB [Concomitant]
  8. DALIRESP [Concomitant]
     Active Substance: ROFLUMILAST
  9. ISOSORBIDE MONO [Concomitant]
  10. AMLODIPINE [Concomitant]
     Active Substance: AMLODIPINE BESYLATE
  11. OXYCODONE [Concomitant]
     Active Substance: OXYCODONE
  12. PROAIR HFA [Concomitant]
     Active Substance: ALBUTEROL SULFATE
  13. NITROSTAT [Concomitant]
     Active Substance: NITROGLYCERIN
  14. PREDNISONE. [Concomitant]
     Active Substance: PREDNISONE
  15. MOVANTIK [Concomitant]
     Active Substance: NALOXEGOL OXALATE
  16. CHANTIX [Concomitant]
     Active Substance: VARENICLINE TARTRATE
  17. DEXAMETHASONE ELX [Concomitant]
  18. BUDESONIDE. [Concomitant]
     Active Substance: BUDESONIDE
  19. SERTRALINE [Concomitant]
     Active Substance: SERTRALINE HYDROCHLORIDE
  20. CYCLOBENZAPRINE [Concomitant]
     Active Substance: CYCLOBENZAPRINE
  21. OLANZAPINE. [Concomitant]
     Active Substance: OLANZAPINE

REACTIONS (2)
  - Dyspnoea [None]
  - Cough [None]

NARRATIVE: CASE EVENT DATE: 20151104
